FAERS Safety Report 19932999 (Version 6)
Quarter: 2023Q4

REPORT INFORMATION
  Report Type: Report from Study
  Country: ES (occurrence: ES)
  Receive Date: 20211008
  Receipt Date: 20231013
  Transmission Date: 20240110
  Serious: Yes (Hospitalization, Other)
  Sender: FDA-Public Use
  Company Number: ES-TAKEDA-2021TUS052277

PATIENT
  Age: 2 Year
  Sex: Male

DRUGS (21)
  1. TEDUGLUTIDE [Suspect]
     Active Substance: TEDUGLUTIDE
     Indication: Short-bowel syndrome
     Dosage: 0.32 MILLIGRAM, QD
     Route: 042
     Dates: start: 20200513, end: 20210717
  2. TEDUGLUTIDE [Suspect]
     Active Substance: TEDUGLUTIDE
     Indication: Short-bowel syndrome
     Dosage: 0.32 MILLIGRAM, QD
     Route: 042
     Dates: start: 20200513, end: 20210717
  3. TEDUGLUTIDE [Suspect]
     Active Substance: TEDUGLUTIDE
     Indication: Short-bowel syndrome
     Dosage: 0.32 MILLIGRAM, QD
     Route: 042
     Dates: start: 20200513, end: 20210717
  4. TEDUGLUTIDE [Suspect]
     Active Substance: TEDUGLUTIDE
     Indication: Short-bowel syndrome
     Dosage: 0.32 MILLIGRAM, QD
     Route: 042
     Dates: start: 20200513, end: 20210717
  5. TEDUGLUTIDE [Suspect]
     Active Substance: TEDUGLUTIDE
     Dosage: 0.32 MILLIGRAM, QD
     Route: 042
     Dates: start: 20210721, end: 20230219
  6. TEDUGLUTIDE [Suspect]
     Active Substance: TEDUGLUTIDE
     Dosage: 0.32 MILLIGRAM, QD
     Route: 042
     Dates: start: 20210721, end: 20230219
  7. TEDUGLUTIDE [Suspect]
     Active Substance: TEDUGLUTIDE
     Dosage: 0.32 MILLIGRAM, QD
     Route: 042
     Dates: start: 20210721, end: 20230219
  8. TEDUGLUTIDE [Suspect]
     Active Substance: TEDUGLUTIDE
     Dosage: 0.32 MILLIGRAM, QD
     Route: 042
     Dates: start: 20210721, end: 20230219
  9. VITAMIN K [Concomitant]
     Active Substance: PHYTONADIONE
     Indication: Product used for unknown indication
     Dosage: 5 MILLIGRAM, QD
     Route: 042
     Dates: start: 20190811
  10. VITAMIN K [Concomitant]
     Active Substance: PHYTONADIONE
     Dosage: 10 MILLIGRAM, 3/WEEK
     Route: 042
     Dates: start: 20211215
  11. LEVOTHYROXINE [Concomitant]
     Active Substance: LEVOTHYROXINE
     Indication: Hormone level abnormal
     Dosage: 31.25 MICROGRAM, QD
     Route: 048
     Dates: start: 20190717
  12. LEVOTHYROXINE [Concomitant]
     Active Substance: LEVOTHYROXINE
     Dosage: UNK, QD
     Route: 048
     Dates: start: 20211105
  13. BEMIPARIN SODIUM [Concomitant]
     Active Substance: BEMIPARIN SODIUM
     Indication: Thrombosis
     Dosage: 1500 INTERNATIONAL UNIT, QD
     Route: 058
     Dates: start: 20200305
  14. URSODIOL [Concomitant]
     Active Substance: URSODIOL
     Indication: Liver disorder
     Dosage: 30 MILLIGRAM, TID
     Route: 048
     Dates: start: 20190110, end: 20200924
  15. VITAMIN D [Concomitant]
     Active Substance: VITAMIN D NOS
     Indication: Vitamin D deficiency
     Dosage: 6 GTT DROPS, QD
     Route: 048
     Dates: start: 20210813, end: 20211103
  16. SODIUM BICARBONATE [Concomitant]
     Active Substance: SODIUM BICARBONATE
     Indication: Metabolic acidosis
     Dosage: 250 MILLIGRAM, TID
     Route: 048
     Dates: start: 20210807
  17. SODIUM BICARBONATE [Concomitant]
     Active Substance: SODIUM BICARBONATE
     Indication: Multivisceral transplantation
  18. LEVOTHYROXINE [Concomitant]
     Active Substance: LEVOTHYROXINE
     Indication: Hormone level abnormal
     Dosage: 150 MICROGRAM, QD
     Route: 048
     Dates: start: 20211105
  19. MELATONIN [Concomitant]
     Active Substance: MELATONIN
     Indication: Insomnia
     Dosage: 4 GTT DROPS, QD
     Route: 048
     Dates: start: 20230807
  20. SULFAMETHOXAZOLE\TRIMETHOPRIM [Concomitant]
     Active Substance: SULFAMETHOXAZOLE\TRIMETHOPRIM
     Indication: Multivisceral transplantation
     Dosage: 5 MILLILITER
     Route: 048
     Dates: start: 20230723
  21. Salvacolina [Concomitant]
     Indication: Multivisceral transplantation
     Dosage: 1 MILLIGRAM, TID
     Route: 048
     Dates: start: 20230723

REACTIONS (2)
  - Intestinal obstruction [Recovered/Resolved]
  - Constipation [Recovered/Resolved]

NARRATIVE: CASE EVENT DATE: 20210714
